FAERS Safety Report 18163024 (Version 7)
Quarter: 2020Q4

REPORT INFORMATION
  Report Type: Report from Study
  Country: DE (occurrence: DE)
  Receive Date: 20200818
  Receipt Date: 20201124
  Transmission Date: 20210113
  Serious: Yes (Life-Threatening, Hospitalization, Other)
  Sender: FDA-Public Use
  Company Number: DE-BRISTOL-MYERS SQUIBB COMPANY-BMS-2020-066221

PATIENT
  Age: 60 Year
  Sex: Male

DRUGS (21)
  1. PANTOPRAZOL [PANTOPRAZOLE] [Concomitant]
     Active Substance: PANTOPRAZOLE
     Indication: PROPHYLAXIS
     Dosage: 40 MILLIGRAM
     Route: 065
     Dates: start: 20190801
  2. APIXABAN [Concomitant]
     Active Substance: APIXABAN
     Indication: CARDIOVASCULAR DISORDER
     Dosage: 10 MILLIGRAM
     Route: 065
  3. RAMIPRIL. [Concomitant]
     Active Substance: RAMIPRIL
     Indication: CEREBROVASCULAR DISORDER
     Dosage: 5 MILLIGRAM
     Route: 065
     Dates: end: 20200925
  4. ASPIRIN. [Concomitant]
     Active Substance: ASPIRIN
     Indication: CEREBROVASCULAR DISORDER
     Dosage: 100 MILLIGRAM
     Route: 065
  5. METAMIZOL [Concomitant]
     Active Substance: METAMIZOLE SODIUM
     Indication: MALIGNANT NEOPLASM PROGRESSION
     Dosage: 1000 MILLIGRAM
     Route: 065
     Dates: start: 20190801, end: 20200415
  6. FENTANYL. [Concomitant]
     Active Substance: FENTANYL
     Dosage: S.I 200UG PRN
     Route: 065
     Dates: start: 20201028
  7. MORPHINE [Concomitant]
     Active Substance: MORPHINE
     Dosage: 10 MILLIGRAM/SQ. METER, PRN
     Route: 048
     Dates: start: 20201020, end: 20201028
  8. NIVOLUMAB [Suspect]
     Active Substance: NIVOLUMAB
     Indication: SQUAMOUS CELL CARCINOMA OF HEAD AND NECK
     Dosage: 240 MILLIGRAM, Q2WK
     Route: 042
     Dates: start: 20200130
  9. FENTANYL. [Concomitant]
     Active Substance: FENTANYL
     Indication: MALIGNANT NEOPLASM PROGRESSION
     Dosage: 12.5 MICROGRAM
     Route: 065
     Dates: start: 20190901, end: 20200415
  10. BISOPROLOL [Concomitant]
     Active Substance: BISOPROLOL
     Indication: CARDIOVASCULAR DISORDER
  11. RAMIPRIL. [Concomitant]
     Active Substance: RAMIPRIL
     Indication: CARDIOVASCULAR DISORDER
  12. SIMVASTATIN. [Concomitant]
     Active Substance: SIMVASTATIN
     Indication: CEREBROVASCULAR DISORDER
     Dosage: 40 MILLIGRAM
     Route: 065
     Dates: end: 20200813
  13. ASPIRIN. [Concomitant]
     Active Substance: ASPIRIN
     Indication: CARDIOVASCULAR DISORDER
  14. SIMVASTATIN. [Concomitant]
     Active Substance: SIMVASTATIN
     Indication: CARDIOVASCULAR DISORDER
  15. APIXABAN [Concomitant]
     Active Substance: APIXABAN
     Indication: CEREBROVASCULAR DISORDER
  16. MORPHINE [Concomitant]
     Active Substance: MORPHINE
     Indication: PRODUCT USED FOR UNKNOWN INDICATION
     Dosage: 5 MILLIGRAM, PRN
     Route: 048
     Dates: start: 20200922
  17. GABAPENTIN. [Concomitant]
     Active Substance: GABAPENTIN
     Indication: PRODUCT USED FOR UNKNOWN INDICATION
     Dosage: 300 MILLIGRAM, BID
     Route: 065
     Dates: start: 20201015
  18. DRONABINOL. [Concomitant]
     Active Substance: DRONABINOL
     Indication: MALIGNANT NEOPLASM PROGRESSION
     Dosage: 2.5 MILLIGRAM, TID
     Route: 048
     Dates: start: 20201112
  19. BISOPROLOL [Concomitant]
     Active Substance: BISOPROLOL
     Indication: CEREBROVASCULAR DISORDER
     Dosage: 2.5 MILLIGRAM
     Route: 065
     Dates: end: 20200925
  20. FENTANYL. [Concomitant]
     Active Substance: FENTANYL
     Dosage: 50 MICROGRAM/HOUR
     Route: 062
     Dates: start: 20201105
  21. FENTANYL. [Concomitant]
     Active Substance: FENTANYL
     Dosage: 75UG/H
     Route: 065
     Dates: start: 20200922

REACTIONS (10)
  - Supraventricular tachycardia [Recovered/Resolved]
  - Hypokalaemia [Recovered/Resolved]
  - Angina pectoris [Unknown]
  - Malignant neoplasm progression [Not Recovered/Not Resolved]
  - Hypercalcaemia [Recovered/Resolved]
  - Anaemia [Recovered/Resolved with Sequelae]
  - Atrial flutter [Recovering/Resolving]
  - Sepsis [Recovered/Resolved]
  - Hypomagnesaemia [Recovered/Resolved]
  - Device related infection [Recovered/Resolved]

NARRATIVE: CASE EVENT DATE: 20200813
